FAERS Safety Report 6867654-1 (Version None)
Quarter: 2010Q3

REPORT INFORMATION
  Report Type: 
  Country: None (occurrence: None)
  Receive Date: 20100722
  Receipt Date: 20100113
  Transmission Date: 20110219
  Serious: No
  Sender: FDA-Public Use
  Company Number: US-BAUSCH-2010BL000209

PATIENT
  Age: 14 Year
  Sex: Female
  Weight: 70 kg

DRUGS (2)
  1. OPCON-A [Suspect]
     Indication: DRY EYE
     Route: 047
     Dates: start: 20100113, end: 20100113
  2. OPCON-A [Suspect]
     Indication: EYE PRURITUS
     Route: 047
     Dates: start: 20100113, end: 20100113

REACTIONS (1)
  - EYE SWELLING [None]
